FAERS Safety Report 7453376-5 (Version None)
Quarter: 2011Q2

REPORT INFORMATION
  Report Type: 
  Country: None (occurrence: None)
  Receive Date: 20110502
  Receipt Date: 20110425
  Transmission Date: 20111010
  Serious: Yes (Other)
  Sender: FDA-Public Use
  Company Number: CHPA2011CA05893

PATIENT
  Sex: Female

DRUGS (2)
  1. OTRIVIN [Suspect]
     Indication: NASAL CONGESTION
  2. OTRIVIN [Suspect]
     Indication: NASOPHARYNGITIS
     Dosage: 3 DF, QD
     Route: 045

REACTIONS (3)
  - DRUG DEPENDENCE [None]
  - NASAL CONGESTION [None]
  - CONDITION AGGRAVATED [None]
